FAERS Safety Report 9989949 (Version 1)
Quarter: 2014Q1

REPORT INFORMATION
  Report Type: Report from Study
  Country: US (occurrence: US)
  Receive Date: 20140310
  Receipt Date: 20140310
  Transmission Date: 20141002
  Serious: No
  Sender: FDA-Public Use
  Company Number: US-ABBVIE-13P-163-1136872-00

PATIENT
  Age: 54 Year
  Sex: Female
  Weight: 78.54 kg

DRUGS (11)
  1. HUMIRA [Suspect]
     Indication: RHEUMATOID ARTHRITIS
     Dates: start: 2005, end: 2005
  2. HUMIRA [Suspect]
     Dates: start: 2005, end: 201301
  3. HUMIRA [Suspect]
     Dates: start: 201302
  4. AMLODIPINE [Concomitant]
     Indication: PRODUCT USED FOR UNKNOWN INDICATION
  5. BENAZAPRIL [Concomitant]
     Indication: HYPERTENSION
  6. ESTRADIOL [Concomitant]
     Indication: HORMONE REPLACEMENT THERAPY
  7. XANAX [Concomitant]
     Indication: SLEEP DISORDER
  8. VICODIN [Concomitant]
     Indication: PAIN MANAGEMENT
  9. SALADEN [Concomitant]
     Indication: DRY MOUTH
  10. ELAVIL [Concomitant]
     Indication: NEURALGIA
  11. ELAVIL [Concomitant]
     Indication: SLEEP DISORDER

REACTIONS (5)
  - Glycosylated haemoglobin increased [Not Recovered/Not Resolved]
  - Urinary tract infection [Recovered/Resolved]
  - Diabetes mellitus [Not Recovered/Not Resolved]
  - Hypoaesthesia [Not Recovered/Not Resolved]
  - Blood glucose increased [Not Recovered/Not Resolved]
